FAERS Safety Report 5580472-X (Version None)
Quarter: 2008Q1

REPORT INFORMATION
  Report Type: 
  Country: None (occurrence: None)
  Receive Date: 20080103
  Receipt Date: 20071221
  Transmission Date: 20080703
  Serious: Yes (Other)
  Sender: FDA-Public Use
  Company Number: US-JNJFOC-20071005638

PATIENT
  Sex: Female
  Weight: 44 kg

DRUGS (1)
  1. ORTHO EVRA [Suspect]
     Indication: MENSTRUATION IRREGULAR
     Route: 062

REACTIONS (16)
  - BLOOD CHOLESTEROL INCREASED [None]
  - BLOOD POTASSIUM INCREASED [None]
  - BLOOD TRIGLYCERIDES INCREASED [None]
  - BUNDLE BRANCH BLOCK RIGHT [None]
  - EJECTION FRACTION DECREASED [None]
  - HYPOTENSION [None]
  - METRORRHAGIA [None]
  - MITRAL VALVE INCOMPETENCE [None]
  - MITRAL VALVE PROLAPSE [None]
  - MYOCARDIAL INFARCTION [None]
  - OFF LABEL USE [None]
  - PERICARDIAL EFFUSION [None]
  - STOMACH DISCOMFORT [None]
  - STRESS CARDIOMYOPATHY [None]
  - THYROID NEOPLASM [None]
  - UTERINE LEIOMYOMA [None]
